FAERS Safety Report 24318030 (Version 1)
Quarter: 2024Q3

REPORT INFORMATION
  Report Type: Other
  Country: GB (occurrence: GB)
  Receive Date: 20240913
  Receipt Date: 20240913
  Transmission Date: 20241017
  Serious: Yes (Other)
  Sender: DUCHESNAY
  Company Number: None

PATIENT

DRUGS (2)
  1. DOXYLAMINE SUCCINATE\PYRIDOXINE HYDROCHLORIDE [Suspect]
     Active Substance: DOXYLAMINE SUCCINATE\PYRIDOXINE HYDROCHLORIDE
     Indication: Morning sickness
     Dosage: 10MG
     Route: 065
     Dates: start: 20240905, end: 20240906
  2. FOLIC ACID [Concomitant]
     Active Substance: FOLIC ACID
     Indication: Vitamin supplementation
     Dosage: 400 MICROGRAM

REACTIONS (4)
  - Muscle spasms [Recovering/Resolving]
  - Tremor [Recovering/Resolving]
  - Restlessness [Unknown]
  - Tachycardia [Unknown]

NARRATIVE: CASE EVENT DATE: 20240901
